FAERS Safety Report 21577963 (Version 1)
Quarter: 2022Q4

REPORT INFORMATION
  Report Type: Spontaneous
  Country: CN (occurrence: CN)
  Receive Date: 20221110
  Receipt Date: 20221110
  Transmission Date: 20230113
  Serious: Yes (Other)
  Sender: FDA-Public Use
  Company Number: CN-MYLANLABS-2022M1123554

PATIENT
  Age: 72 Year
  Sex: Male
  Weight: 73 kg

DRUGS (3)
  1. LIPITOR [Suspect]
     Active Substance: ATORVASTATIN CALCIUM
     Indication: Lipids decreased
     Dosage: 20 MILLIGRAM, QD
     Route: 048
     Dates: start: 20220928, end: 20221013
  2. LIPITOR [Suspect]
     Active Substance: ATORVASTATIN CALCIUM
     Indication: Lipids decreased
     Dosage: 20 MILLIGRAM, QD
     Route: 045
     Dates: start: 20221014, end: 20221021
  3. EZETIMIBE [Concomitant]
     Active Substance: EZETIMIBE
     Indication: Lipids decreased
     Dosage: 10 MILLIGRAM, QD
     Route: 045
     Dates: start: 20221014, end: 20221021

REACTIONS (2)
  - Rhabdomyolysis [Recovering/Resolving]
  - Product use issue [Unknown]

NARRATIVE: CASE EVENT DATE: 20221014
